FAERS Safety Report 6679354-1 (Version None)
Quarter: 2010Q2

REPORT INFORMATION
  Report Type: 
  Country: None (occurrence: None)
  Receive Date: 20100413
  Receipt Date: 20100407
  Transmission Date: 20101027
  Serious: Yes (Death)
  Sender: FDA-Public Use
  Company Number: BR-JNJFOC-20071204527

PATIENT
  Age: 33 Year
  Sex: Male

DRUGS (7)
  1. HALDOL [Suspect]
     Indication: AGITATION
     Route: 042
  2. TOPIRAMATE [Interacting]
     Indication: AGITATION
     Route: 048
  3. DIAZEPAM [Suspect]
     Indication: AGITATION
     Route: 048
  4. CAPTOPRIL [Suspect]
     Indication: DRUG USE FOR UNKNOWN INDICATION
     Route: 048
  5. CLOZAPINE [Suspect]
     Indication: AGITATION
     Route: 048
  6. PIMOZIDE [Suspect]
     Indication: DRUG USE FOR UNKNOWN INDICATION
  7. FENERGAN [Interacting]
     Indication: DRUG USE FOR UNKNOWN INDICATION
     Route: 065

REACTIONS (2)
  - DEATH [None]
  - DRUG INTERACTION [None]
